FAERS Safety Report 7468005-4 (Version None)
Quarter: 2011Q2

REPORT INFORMATION
  Report Type: 
  Country: None (occurrence: None)
  Receive Date: 20110509
  Receipt Date: 20110426
  Transmission Date: 20111010
  Serious: Yes (Hospitalization)
  Sender: FDA-Public Use
  Company Number: JP-PFIZER INC-2011098022

PATIENT
  Age: 68 Year
  Sex: Male

DRUGS (6)
  1. LIPITOR [Suspect]
     Dosage: 10 MG, DAILY
     Route: 048
     Dates: start: 20101201
  2. PLAVIX [Concomitant]
     Dosage: UNK
     Route: 048
     Dates: start: 20101201
  3. PRERAN [Concomitant]
     Dosage: UNK
     Route: 048
     Dates: start: 20101201
  4. TAKEPRON [Concomitant]
     Dosage: UNK
     Route: 048
     Dates: start: 20110301
  5. ARTIST [Concomitant]
     Dosage: UNK
     Route: 048
     Dates: start: 20101201
  6. ASPIRIN [Concomitant]
     Dosage: UNK
     Route: 048
     Dates: start: 20101201

REACTIONS (1)
  - PLATELET COUNT DECREASED [None]
